FAERS Safety Report 8821170 (Version 1)
Quarter: 2012Q4

REPORT INFORMATION
  Report Type: 
  Country: GB (occurrence: GB)
  Receive Date: 20121002
  Receipt Date: 20121002
  Transmission Date: 20130627
  Serious: Yes (Hospitalization, Other)
  Sender: FDA-Public Use
  Company Number: GB-ROCHE-1120640

PATIENT

DRUGS (5)
  1. LUCENTIS [Suspect]
     Indication: AGE-RELATED MACULAR DEGENERATION
     Route: 050
     Dates: start: 20111128
  2. FELODIPINE [Concomitant]
  3. BENDROFLUMETHIAZIDE [Concomitant]
  4. LEVOTHYROXINE [Concomitant]
  5. RANITIDINE [Concomitant]

REACTIONS (5)
  - Endophthalmitis [Recovered/Resolved]
  - Blindness [Recovered/Resolved]
  - Vision blurred [Unknown]
  - Eye pain [Unknown]
  - Staphylococcal infection [Unknown]
